FAERS Safety Report 16390252 (Version 1)
Quarter: 2019Q2

REPORT INFORMATION
  Report Type: Spontaneous
  Country: NL (occurrence: NL)
  Receive Date: 20190604
  Receipt Date: 20190604
  Transmission Date: 20190711
  Serious: Yes (Hospitalization)
  Sender: FDA-Public Use
  Company Number: NL-BIOGEN-2019BI00747298

PATIENT
  Age: 45 Year
  Sex: Male
  Weight: 76 kg

DRUGS (10)
  1. FLUTICASON [Concomitant]
     Active Substance: FLUTICASONE
     Indication: PRODUCT USED FOR UNKNOWN INDICATION
     Dosage: 0.05MG/G, IF NEEDED ONCE A DAY, APPLY THINLY
     Route: 065
  2. TECFIDERA [Suspect]
     Active Substance: DIMETHYL FUMARATE
     Indication: MULTIPLE SCLEROSIS
     Dosage: TWICE DAILY 1 CAPSULE
     Route: 048
     Dates: start: 20160101, end: 20190307
  3. NOVORAPID [Concomitant]
     Active Substance: INSULIN ASPART
     Indication: PRODUCT USED FOR UNKNOWN INDICATION
     Dosage: INSULIN ASPART SOLUTION FOR INJECTION 100U/ML, CONTINUOUS VIA CSII
     Route: 065
  4. AMITRIPTYLINE [Concomitant]
     Active Substance: AMITRIPTYLINE
     Indication: PRODUCT USED FOR UNKNOWN INDICATION
     Dosage: ONCE A DAY 1 TABLET BEFORE THE NIGHT
     Route: 065
  5. VITAMIN B12 [Concomitant]
     Active Substance: CYANOCOBALAMIN
     Indication: PRODUCT USED FOR UNKNOWN INDICATION
     Dosage: AOV, EVERY OTHER DAY, PREPARATION FROM DRUG STORE
     Route: 065
  6. OMEPRAZOL [Concomitant]
     Active Substance: OMEPRAZOLE
     Indication: PRODUCT USED FOR UNKNOWN INDICATION
     Dosage: 1 CAP FOR 1 DAY, 1 REST DAY
     Route: 065
  7. CALCIUM CARBONATE/COLECALCIFEROL [Concomitant]
     Active Substance: CALCIUM CARBONATE\CHOLECALCIFEROL
     Indication: PRODUCT USED FOR UNKNOWN INDICATION
     Dosage: 1.25G/800IU (500MG CA)
     Route: 065
  8. EUTHYROX [Concomitant]
     Active Substance: LEVOTHYROXINE SODIUM
     Indication: PRODUCT USED FOR UNKNOWN INDICATION
     Route: 065
  9. CALCITROL [Concomitant]
     Active Substance: CALCITRIOL
     Indication: PRODUCT USED FOR UNKNOWN INDICATION
     Dosage: BY AGREEMENT, APPLY TWICE A DAY AS REQUIRED. 3 MCG/G
     Route: 065
  10. EUTHYROX [Concomitant]
     Active Substance: LEVOTHYROXINE SODIUM
     Indication: PRODUCT USED FOR UNKNOWN INDICATION
     Dosage: BY AGREEMENT, ONE DAY 25MCG, NEXT DAY 12.5MCG
     Route: 065

REACTIONS (2)
  - Meningitis cryptococcal [Not Recovered/Not Resolved]
  - Lymphopenia [Not Recovered/Not Resolved]

NARRATIVE: CASE EVENT DATE: 20180308
